FAERS Safety Report 8420879-6 (Version None)
Quarter: 2012Q2

REPORT INFORMATION
  Report Type: 
  Country: None (occurrence: None)
  Receive Date: 20120608
  Receipt Date: 20120530
  Transmission Date: 20120825
  Serious: Yes (Other)
  Sender: FDA-Public Use
  Company Number: JP-PFIZER INC-2012135915

PATIENT
  Age: 79 Year
  Sex: Female

DRUGS (5)
  1. LIPITOR [Suspect]
     Indication: HYPERLIPIDAEMIA
     Dosage: 10 MG, DAILY
     Route: 048
  2. DEPAS [Concomitant]
     Route: 048
  3. ZOLPIDEM [Suspect]
     Indication: INSOMNIA
     Dosage: 10 MG, DAILY
     Route: 048
  4. AMLODIPINE [Concomitant]
     Dosage: UNK
     Route: 048
  5. FOSAMAX [Concomitant]
     Dosage: UNK

REACTIONS (1)
  - INTRAOCULAR PRESSURE INCREASED [None]
